FAERS Safety Report 20725344 (Version 1)
Quarter: 2022Q2

REPORT INFORMATION
  Report Type: Spontaneous
  Country: US (occurrence: None)
  Receive Date: 20220419
  Receipt Date: 20220419
  Transmission Date: 20220721
  Serious: Yes (Death)
  Sender: FDA-Public Use
  Company Number: None

PATIENT
  Age: 81 Year
  Sex: Male

DRUGS (7)
  1. RITUXAN [Suspect]
     Active Substance: RITUXIMAB
     Dosage: OTHER QUANTITY : 500/50 MG/ML;?OTHER FREQUENCY : WEEK 0 AND WEEK 2;?
     Route: 042
  2. RITUXAN [Suspect]
     Active Substance: RITUXIMAB
     Dosage: OTHER FREQUENCY : EVERY 6 MONTHS;?
     Route: 042
  3. DAYPRO [Concomitant]
     Active Substance: OXAPROZIN
  4. ENBREL [Concomitant]
     Active Substance: ETANERCEPT
  5. LOPID [Concomitant]
     Active Substance: GEMFIBROZIL
  6. THIAMINE HYDROCHLORIDE [Concomitant]
     Active Substance: THIAMINE HYDROCHLORIDE
  7. ZANTAC [Concomitant]
     Active Substance: RANITIDINE HYDROCHLORIDE

REACTIONS (1)
  - Death [None]

NARRATIVE: CASE EVENT DATE: 20220201
